FAERS Safety Report 12568282 (Version 1)
Quarter: 2016Q3

REPORT INFORMATION
  Report Type: Spontaneous
  Country: US (occurrence: US)
  Receive Date: 20160718
  Receipt Date: 20160718
  Transmission Date: 20161109
  Serious: No
  Sender: FDA-Public Use
  Company Number: US-TEIKOKU PHARMA USA-TPU2016-00475

PATIENT
  Sex: Female
  Weight: 106.69 kg

DRUGS (1)
  1. LIDOCAINE PATCH [Suspect]
     Active Substance: LIDOCAINE
     Indication: OSTEOARTHRITIS
     Dosage: APPLY 1/2 TO 1 PATCH ON EACH KNEE EVERY 12 HOURS
     Route: 061
     Dates: start: 2013

REACTIONS (1)
  - Inappropriate schedule of drug administration [Unknown]
